FAERS Safety Report 22217163 (Version 3)
Quarter: 2025Q2

REPORT INFORMATION
  Report Type: Spontaneous
  Country: US (occurrence: US)
  Receive Date: 20230417
  Receipt Date: 20250510
  Transmission Date: 20250717
  Serious: No
  Sender: SANOFI AVENTIS
  Company Number: US-SA-SAC20230414001521

PATIENT
  Age: 48 Year
  Sex: Female

DRUGS (1)
  1. DUPIXENT [Suspect]
     Active Substance: DUPILUMAB
     Indication: Neurodermatitis
     Dosage: 300 MG, QOW
     Route: 058
     Dates: end: 202410

REACTIONS (8)
  - Muscular weakness [Unknown]
  - Dyspnoea [Unknown]
  - Injection site pain [Unknown]
  - Yellow skin [Unknown]
  - Infection [Unknown]
  - Pharyngitis streptococcal [Unknown]
  - Pain of skin [Recovered/Resolved]
  - Erythema [Unknown]

NARRATIVE: CASE EVENT DATE: 20230501
